FAERS Safety Report 14139224 (Version 3)
Quarter: 2017Q4

REPORT INFORMATION
  Report Type: Spontaneous
  Country: US (occurrence: US)
  Receive Date: 20171028
  Receipt Date: 20171130
  Transmission Date: 20180321
  Serious: No
  Sender: FDA-Public Use
  Company Number: PHEH2017US034313

PATIENT
  Sex: Female

DRUGS (1)
  1. BIMATOPROST. [Suspect]
     Active Substance: BIMATOPROST
     Indication: PRODUCT USED FOR UNKNOWN INDICATION
     Dosage: 1 GTT, UNK
     Route: 047

REACTIONS (3)
  - Blepharal pigmentation [Unknown]
  - Madarosis [Not Recovered/Not Resolved]
  - Drug ineffective [Unknown]
